FAERS Safety Report 24267813 (Version 1)
Quarter: 2024Q3

REPORT INFORMATION
  Report Type: Spontaneous
  Country: US (occurrence: None)
  Receive Date: 20240829
  Receipt Date: 20240829
  Transmission Date: 20241016
  Serious: Yes (Hospitalization)
  Sender: Public
  Company Number: None

PATIENT
  Age: 59 Year
  Sex: Female

DRUGS (1)
  1. CAPECITABINE [Suspect]
     Active Substance: CAPECITABINE
     Indication: Rectal cancer
     Dosage: OTHER QUANTITY : 1650;?OTHER FREQUENCY : BID M-F WITH RADIATION;?

REACTIONS (8)
  - Diarrhoea haemorrhagic [None]
  - Gastrointestinal haemorrhage [None]
  - Therapy interrupted [None]
  - Fall [None]
  - Peripheral swelling [None]
  - Contusion [None]
  - Pain in extremity [None]
  - Asthenia [None]
